FAERS Safety Report 12617837 (Version 1)
Quarter: 2016Q3

REPORT INFORMATION
  Report Type: Spontaneous
  Country: US (occurrence: None)
  Receive Date: 20160802
  Receipt Date: 20160802
  Transmission Date: 20161109
  Serious: No
  Sender: FDA-Public Use
  Company Number: None

PATIENT

DRUGS (1)
  1. QUETIAPINE FUMARATE QUETIAPINE [Suspect]
     Active Substance: QUETIAPINE FUMARATE

REACTIONS (1)
  - Incorrect dose administered [None]
